FAERS Safety Report 15943054 (Version 1)
Quarter: 2019Q1

REPORT INFORMATION
  Report Type: Spontaneous
  Country: US (occurrence: US)
  Receive Date: 20190118
  Receipt Date: 20190118
  Transmission Date: 20190417
  Serious: Yes (Hospitalization)
  Sender: FDA-Public Use
  Company Number: None

PATIENT
  Age: 56 Year
  Sex: Female
  Weight: 75.9 kg

DRUGS (2)
  1. GEMCITABINE HYDROCHLORIDE. [Suspect]
     Active Substance: GEMCITABINE HYDROCHLORIDE
     Dates: end: 20181002
  2. CISPLATIN. [Suspect]
     Active Substance: CISPLATIN
     Dates: end: 20181002

REACTIONS (8)
  - Haemoglobin decreased [None]
  - Dilatation intrahepatic duct acquired [None]
  - Abdominal pain [None]
  - Disease progression [None]
  - Constipation [None]
  - Therapy cessation [None]
  - Vomiting [None]
  - Nausea [None]

NARRATIVE: CASE EVENT DATE: 20181023
